FAERS Safety Report 8615630-0 (Version None)
Quarter: 2012Q3

REPORT INFORMATION
  Report Type: 
  Country: None (occurrence: None)
  Receive Date: 20120823
  Receipt Date: 20120817
  Transmission Date: 20120928
  Serious: Yes (Other)
  Sender: FDA-Public Use
  Company Number: US-ROXANE LABORATORIES, INC.-2012-RO-01717RO

PATIENT
  Age: 30 Year
  Sex: Male

DRUGS (1)
  1. HYDROMORPHONE HYDROCHLORIDE [Suspect]

REACTIONS (3)
  - TRAUMATIC LUNG INJURY [None]
  - HAEMOPTYSIS [None]
  - DRUG ABUSE [None]
